FAERS Safety Report 4599904-9 (Version None)
Quarter: 2005Q1

REPORT INFORMATION
  Report Type: 
  Country: None (occurrence: None)
  Receive Date: 20050303
  Receipt Date: 20050303
  Transmission Date: 20050727
  Serious: Yes (Other)
  Sender: FDA-Public Use
  Company Number: None

PATIENT
  Sex: Female

DRUGS (2)
  1. TENORETIC 100 [Suspect]
     Indication: BLOOD PRESSURE INCREASED
     Dosage: 1 PO DAILY
     Route: 048
  2. TENORETIC 100 [Suspect]
     Indication: HEADACHE
     Dosage: 1 PO DAILY
     Route: 048

REACTIONS (3)
  - BLOOD PRESSURE INCREASED [None]
  - HEADACHE [None]
  - PHARMACEUTICAL PRODUCT COMPLAINT [None]
